FAERS Safety Report 4948626-0 (Version None)
Quarter: 2006Q1

REPORT INFORMATION
  Report Type: 
  Country: None (occurrence: None)
  Receive Date: 20060313
  Receipt Date: 20060303
  Transmission Date: 20060701
  Serious: Yes (Other)
  Sender: FDA-Public Use
  Company Number: 2006032640

PATIENT
  Age: 88 Year
  Sex: Male

DRUGS (2)
  1. LIPITOR [Suspect]
     Indication: DYSLIPIDAEMIA
     Dosage: ORAL
     Route: 048
     Dates: start: 20060112, end: 20060120
  2. BEZATOL - SLOW RELEASE (BEZAFIBRATE) [Concomitant]

REACTIONS (2)
  - MYALGIA [None]
  - MYOGLOBINURIA [None]
